FAERS Safety Report 15931788 (Version 1)
Quarter: 2019Q1

REPORT INFORMATION
  Report Type: Spontaneous
  Country: GB (occurrence: GB)
  Receive Date: 20190207
  Receipt Date: 20190207
  Transmission Date: 20190417
  Serious: Yes (Other)
  Sender: FDA-Public Use
  Company Number: GB-TESAROUBC-2019-TSO00272-GB

PATIENT

DRUGS (1)
  1. ZEJULA [Suspect]
     Active Substance: NIRAPARIB
     Indication: NEOPLASM MALIGNANT
     Dosage: 200 MG, QD
     Dates: start: 20181219, end: 20190107

REACTIONS (7)
  - Metastases to liver [Unknown]
  - Metastases to spleen [Unknown]
  - Sepsis [Unknown]
  - Peritoneal disorder [Unknown]
  - Neoplasm progression [Unknown]
  - Abdominal distension [Unknown]
  - Splenic rupture [Unknown]
